FAERS Safety Report 6462713-X (Version None)
Quarter: 2009Q4

REPORT INFORMATION
  Report Type: 
  Country: None (occurrence: None)
  Receive Date: 20091130
  Receipt Date: 20091124
  Transmission Date: 20100525
  Serious: Yes (Other)
  Sender: FDA-Public Use
  Company Number: DE-ALLERGAN-0915990US

PATIENT
  Age: 61 Year
  Sex: Male
  Weight: 78 kg

DRUGS (4)
  1. BIMATOPROST AND TIMOLOL MALEATE [Suspect]
     Indication: GLAUCOMA
     Dosage: UNK
     Route: 047
     Dates: start: 20090601, end: 20090901
  2. BETA BLOCKING AGENTS [Concomitant]
     Indication: HYPERTENSION
  3. UNSPECIFIED GLAUCOMA MEDICATIONS [Concomitant]
     Indication: GLAUCOMA
  4. GLAUPAX [Concomitant]
     Indication: GLAUCOMA
     Dosage: UNK
     Dates: start: 20090201

REACTIONS (2)
  - GAMMA-GLUTAMYLTRANSFERASE [None]
  - INTRAOCULAR PRESSURE INCREASED [None]
